FAERS Safety Report 7202030-3 (Version None)
Quarter: 2010Q4

REPORT INFORMATION
  Report Type: 
  Country: None (occurrence: None)
  Receive Date: 20101229
  Receipt Date: 20101221
  Transmission Date: 20110411
  Serious: Yes (Hospitalization, Other)
  Sender: FDA-Public Use
  Company Number: BE-GENZYME-CLOF-1001346

PATIENT
  Sex: Female
  Weight: 69 kg

DRUGS (8)
  1. EVOLTRA [Suspect]
     Indication: PRODUCT USED FOR UNKNOWN INDICATION
     Dosage: 27.15 MG, UNK
     Route: 042
     Dates: start: 20101103, end: 20101107
  2. CYTARABINE [Suspect]
     Indication: PRODUCT USED FOR UNKNOWN INDICATION
     Dosage: 3620 MG, UNK
     Route: 042
     Dates: start: 20101103, end: 20101108
  3. AMSACRINE [Suspect]
     Indication: PRODUCT USED FOR UNKNOWN INDICATION
     Dosage: 217 MG, UNK
     Route: 042
     Dates: start: 20101106, end: 20101108
  4. DIFLUCAN [Concomitant]
     Indication: PROPHYLAXIS
     Dosage: 200 MG, UNK
     Route: 048
     Dates: start: 20100927, end: 20101210
  5. RANITIDINE [Concomitant]
     Indication: PROPHYLAXIS
     Dosage: 300 MG, UNK
     Route: 048
     Dates: start: 20100927, end: 20101210
  6. ORGAMETRIL [Concomitant]
     Indication: PROPHYLAXIS
     Dosage: 5 MG, UNK
     Route: 048
     Dates: start: 20100927, end: 20101210
  7. ZOVIRAX [Concomitant]
     Indication: PROPHYLAXIS
     Dosage: 1200 MG, UNK
     Route: 048
     Dates: start: 20101203, end: 20101212
  8. CIPROXINE [Concomitant]
     Indication: PYREXIA
     Dosage: 1 G, UNK
     Route: 048
     Dates: start: 20101202, end: 20101210

REACTIONS (3)
  - ASPERGILLOSIS [None]
  - INFECTION [None]
  - THROMBOCYTOPENIA [None]
